FAERS Safety Report 16790184 (Version 1)
Quarter: 2019Q4

REPORT INFORMATION
  Report Type: Spontaneous
  Country: US (occurrence: US)
  Receive Date: 20190909
  Receipt Date: 20190909
  Transmission Date: 20200122
  Serious: Yes (Disabling, Other)
  Sender: FDA-Public Use
  Company Number: None

PATIENT
  Age: 38 Year
  Sex: Female
  Weight: 57.6 kg

DRUGS (2)
  1. OPTIRAY 320 [Suspect]
     Active Substance: IOVERSOL
     Indication: COMPUTERISED TOMOGRAM
     Dosage: ?          QUANTITY:94 ML;OTHER FREQUENCY:ONCE;?
     Route: 042
     Dates: start: 20190816, end: 20190816
  2. IRON SUPPLEMENT [Concomitant]
     Active Substance: IRON

REACTIONS (7)
  - Arthralgia [None]
  - Night blindness [None]
  - Contrast media allergy [None]
  - Contrast media reaction [None]
  - General physical health deterioration [None]
  - Loss of consciousness [None]
  - Visual impairment [None]

NARRATIVE: CASE EVENT DATE: 20190822
